FAERS Safety Report 9032310 (Version 2)
Quarter: 2013Q1

REPORT INFORMATION
  Report Type: Spontaneous
  Country: CN (occurrence: CN)
  Receive Date: 20130122
  Receipt Date: 20130327
  Transmission Date: 20140127
  Serious: Yes (Hospitalization)
  Sender: FDA-Public Use
  Company Number: CN-GENZYME-CERZ-1002783

PATIENT
  Age: 20 Year
  Sex: Male
  Weight: 62 kg

DRUGS (2)
  1. CEREZYME [Suspect]
     Indication: GAUCHER^S DISEASE
     Dosage: UNK
     Route: 042
     Dates: start: 200909
  2. CEREZYME [Suspect]
     Dosage: 38.70 U/KG, Q2W
     Route: 042
     Dates: start: 20120927, end: 20121125

REACTIONS (1)
  - Osteonecrosis [Not Recovered/Not Resolved]
